FAERS Safety Report 6083979-4 (Version None)
Quarter: 2009Q1

REPORT INFORMATION
  Report Type: 
  Country: None (occurrence: None)
  Receive Date: 20090217
  Receipt Date: 20090217
  Transmission Date: 20090719
  Serious: Yes (Other)
  Sender: FDA-Public Use
  Company Number: None

PATIENT
  Age: 46 Year
  Sex: Male
  Weight: 127.0072 kg

DRUGS (1)
  1. BUPROPION HCL XL TABS 150MG ANCHEN TEVA [Suspect]
     Indication: DEPRESSION
     Dosage: 150MG 1 TABLET DAILY PO
     Route: 048
     Dates: start: 20080623, end: 20080720

REACTIONS (8)
  - ACTIVITIES OF DAILY LIVING IMPAIRED [None]
  - DISTURBANCE IN ATTENTION [None]
  - EMOTIONAL DISTRESS [None]
  - IMPAIRED WORK ABILITY [None]
  - INSOMNIA [None]
  - IRRITABILITY [None]
  - PRODUCT QUALITY ISSUE [None]
  - THINKING ABNORMAL [None]
